FAERS Safety Report 14506049 (Version 1)
Quarter: 2018Q1

REPORT INFORMATION
  Report Type: Spontaneous
  Country: PT (occurrence: PT)
  Receive Date: 20180208
  Receipt Date: 20180208
  Transmission Date: 20180509
  Serious: Yes (Other)
  Sender: FDA-Public Use
  Company Number: PT-MYLANLABS-2018M1008275

PATIENT
  Age: 61 Year
  Sex: Female

DRUGS (5)
  1. TRIAMCINOLONE [Suspect]
     Active Substance: TRIAMCINOLONE
     Indication: CYSTOID MACULAR OEDEMA
     Dosage: UNK
     Route: 050
     Dates: start: 200910, end: 201504
  2. RANIBIZUMAB. [Concomitant]
     Active Substance: RANIBIZUMAB
     Indication: CYSTOID MACULAR OEDEMA
     Dosage: UNK
     Route: 050
     Dates: start: 201310, end: 201411
  3. FLUOCINOLONE ACETONIDE. [Suspect]
     Active Substance: FLUOCINOLONE ACETONIDE
     Indication: DIABETIC RETINAL OEDEMA
     Dosage: FLUOCINOLONE ACETONIDE INTRAVITREAL IMPLANT INJECTION
     Route: 050
     Dates: start: 201509
  4. RANIBIZUMAB. [Concomitant]
     Active Substance: RANIBIZUMAB
     Indication: DIABETIC RETINAL OEDEMA
  5. TRIAMCINOLONE [Suspect]
     Active Substance: TRIAMCINOLONE
     Indication: DIABETIC RETINAL OEDEMA

REACTIONS (1)
  - Ocular hypertension [Recovered/Resolved]

NARRATIVE: CASE EVENT DATE: 201204
